FAERS Safety Report 9926107 (Version 2)
Quarter: 2018Q2

REPORT INFORMATION
  Report Type: Spontaneous
  Country: FR (occurrence: FR)
  Receive Date: 20140226
  Receipt Date: 20180403
  Transmission Date: 20180711
  Serious: Yes (Hospitalization, Other)
  Sender: FDA-Public Use
  Company Number: PHHY2014FR022242

PATIENT
  Age: 45 Year
  Sex: Male

DRUGS (3)
  1. PARACETAMOL [Suspect]
     Active Substance: ACETAMINOPHEN
     Indication: SEPSIS
     Dosage: 3 G, UNK
     Route: 065
  2. RIFAMPICIN [Suspect]
     Active Substance: RIFAMPIN
     Indication: SEPSIS
     Dosage: UNK
     Route: 065
  3. THIAMPHENICOL [Suspect]
     Active Substance: THIAMPHENICOL
     Indication: SEPSIS
     Dosage: UNK
     Route: 065

REACTIONS (2)
  - Hepatic necrosis [Unknown]
  - Drug-induced liver injury [Unknown]
